FAERS Safety Report 11349276 (Version 5)
Quarter: 2016Q3

REPORT INFORMATION
  Report Type: Spontaneous
  Country: US (occurrence: US)
  Receive Date: 20150807
  Receipt Date: 20160805
  Transmission Date: 20161109
  Serious: Yes (Other)
  Sender: FDA-Public Use
  Company Number: US-ELI_LILLY_AND_COMPANY-US201506002986

PATIENT
  Age: 42 Year
  Sex: Male

DRUGS (3)
  1. CYRAMZA [Suspect]
     Active Substance: RAMUCIRUMAB
     Indication: ADENOCARCINOMA GASTRIC
     Dosage: UNK, UNKNOWN
     Route: 065
     Dates: start: 20150529
  2. XELODA [Suspect]
     Active Substance: CAPECITABINE
     Indication: ADENOCARCINOMA GASTRIC
     Dosage: 1500 MG, BID
     Route: 048
     Dates: start: 20151023
  3. FOLFOX [Suspect]
     Active Substance: FLUOROURACIL\LEUCOVORIN CALCIUM\OXALIPLATIN
     Indication: ADENOCARCINOMA GASTRIC
     Dosage: UNK, UNKNOWN
     Route: 065
     Dates: start: 20150529

REACTIONS (17)
  - Abdominal distension [Unknown]
  - Diarrhoea [Recovered/Resolved]
  - Infectious colitis [Unknown]
  - Gastritis [Recovered/Resolved]
  - Abdominal pain upper [Recovered/Resolved]
  - Large intestinal stenosis [Unknown]
  - Colitis [Unknown]
  - Gilbert^s syndrome [Unknown]
  - Blood bilirubin increased [Unknown]
  - Rash papular [Unknown]
  - Large intestinal obstruction [Unknown]
  - Skin hyperpigmentation [Unknown]
  - Pyogenic granuloma [Recovered/Resolved]
  - Blood pressure increased [Unknown]
  - Platelet count decreased [Unknown]
  - Tongue haemorrhage [Recovered/Resolved]
  - Haemangioma [Unknown]

NARRATIVE: CASE EVENT DATE: 20150605
